FAERS Safety Report 6335006-9 (Version None)
Quarter: 2009Q3

REPORT INFORMATION
  Report Type: 
  Country: None (occurrence: None)
  Receive Date: 20090831
  Receipt Date: 20090819
  Transmission Date: 20100115
  Serious: Yes (Other)
  Sender: FDA-Public Use
  Company Number: US-PFIZER INC-2009258092

PATIENT
  Sex: Female
  Weight: 82.54 kg

DRUGS (13)
  1. LIPITOR [Suspect]
     Indication: BLOOD CHOLESTEROL INCREASED
     Dosage: 40 MG, 1X/DAY
     Route: 048
  2. OMEPRAZOLE [Concomitant]
     Dosage: 40 MG, UNK
  3. POTASSIUM CHLORIDE [Concomitant]
     Dosage: 10 MEQ, 1X/DAY
  4. GABITRIL [Concomitant]
     Dosage: 40 MG, UNK
  5. MORPHINE SULFATE [Concomitant]
     Dosage: 60 MG, 3X/DAY
  6. MORPHINE SULFATE [Concomitant]
     Dosage: 30 MG, 3X/DAY
  7. BACLOFEN [Concomitant]
     Dosage: 20 MG, 3X/DAY
  8. TRICOR [Concomitant]
     Dosage: 145 MG, UNK
  9. PHENAZOPYRIDINE HCL TAB [Concomitant]
  10. PAXIL [Concomitant]
  11. XANAX [Concomitant]
  12. VITAMIN B-12 [Concomitant]
  13. FOLIC ACID [Concomitant]

REACTIONS (10)
  - BLADDER CATHETERISATION [None]
  - BLOOD TRIGLYCERIDES INCREASED [None]
  - COGNITIVE DISORDER [None]
  - COMPLEX REGIONAL PAIN SYNDROME [None]
  - HEPATIC STEATOSIS [None]
  - HYPERTENSION [None]
  - MEMORY IMPAIRMENT [None]
  - MIGRAINE [None]
  - URETHRAL PAIN [None]
  - WEIGHT INCREASED [None]
